FAERS Safety Report 12236837 (Version 1)
Quarter: 2016Q2

REPORT INFORMATION
  Report Type: Spontaneous
  Country: US (occurrence: US)
  Receive Date: 20160405
  Receipt Date: 20160405
  Transmission Date: 20160815
  Serious: Yes (Hospitalization)
  Sender: FDA-Public Use
  Company Number: US-BEH-2016060619

PATIENT
  Sex: Female

DRUGS (1)
  1. HIZENTRA [Suspect]
     Active Substance: HUMAN IMMUNOGLOBULIN G
     Indication: PRODUCT USED FOR UNKNOWN INDICATION

REACTIONS (8)
  - Oedema peripheral [Unknown]
  - Laceration [Unknown]
  - Ear swelling [Unknown]
  - Blood pressure abnormal [Unknown]
  - Colonoscopy [Unknown]
  - Polychondritis [Unknown]
  - Ear pain [Unknown]
  - External ear inflammation [Unknown]

NARRATIVE: CASE EVENT DATE: 201508
